FAERS Safety Report 9601436 (Version 1)
Quarter: 2013Q4

REPORT INFORMATION
  Report Type: Spontaneous
  Country: US (occurrence: US)
  Receive Date: 20131007
  Receipt Date: 20131007
  Transmission Date: 20140711
  Serious: No
  Sender: FDA-Public Use
  Company Number: US-BIOGENIDEC-2013BI089460

PATIENT
  Sex: Female

DRUGS (2)
  1. AVONEX [Suspect]
     Indication: MULTIPLE SCLEROSIS
     Route: 030
     Dates: start: 19990401
  2. AVONEX [Suspect]
     Indication: MULTIPLE SCLEROSIS
     Route: 030

REACTIONS (4)
  - Type 1 diabetes mellitus [Not Recovered/Not Resolved]
  - Abnormal loss of weight [Not Recovered/Not Resolved]
  - Drug administered at inappropriate site [Not Recovered/Not Resolved]
  - Injection site hypertrophy [Not Recovered/Not Resolved]
